FAERS Safety Report 18040637 (Version 1)
Quarter: 2020Q3

REPORT INFORMATION
  Report Type: Spontaneous
  Country: JP (occurrence: JP)
  Receive Date: 20200717
  Receipt Date: 20200717
  Transmission Date: 20201103
  Serious: Yes (Hospitalization, Other)
  Sender: FDA-Public Use
  Company Number: JP-009507513-1911JPN000866J

PATIENT
  Age: 77 Year
  Sex: Male
  Weight: 52 kg

DRUGS (20)
  1. HEPARINOID [Concomitant]
     Active Substance: CHONDROITIN SULFATE (BOVINE)
     Indication: PRURITUS
     Dosage: UNK
     Route: 065
     Dates: start: 20190905
  2. JUZENTAIHOTO [Concomitant]
     Active Substance: HERBALS
     Indication: DECREASED APPETITE
     Dosage: UNK
     Route: 065
     Dates: start: 20191008
  3. CARBOCISTEINE [Concomitant]
     Active Substance: CARBOCYSTEINE
     Indication: COUGH
     Dosage: UNK
     Route: 065
     Dates: start: 20190902
  4. MAGMITT [Concomitant]
     Active Substance: MAGNESIUM OXIDE
     Indication: CONSTIPATION
     Dosage: UNK
     Route: 048
     Dates: start: 20170815
  5. RINDERON VG [Concomitant]
     Active Substance: BETAMETHASONE VALERATE\GENTAMICIN SULFATE
     Indication: PRURITUS
     Dosage: UNK
     Route: 065
     Dates: start: 20190119
  6. THIAMINE DISULFIDE PHOSPHATE [Concomitant]
     Indication: DECREASED APPETITE
     Dosage: UNK
     Route: 065
     Dates: start: 20191008
  7. THIAMINE DISULFIDE PHOSPHATE [Concomitant]
     Indication: ENCEPHALITIS
  8. BFLUID [Concomitant]
     Active Substance: AMINO ACIDS\DEXTROSE\ELECTROLYTES NOS\VITAMINS
     Indication: ENCEPHALITIS
     Dosage: UNK
     Route: 065
     Dates: start: 20191017
  9. LOXOPROFEN SODIUM HYDRATE [Concomitant]
     Active Substance: LOXOPROFEN SODIUM DIHYDRATE
     Indication: SPINAL COMPRESSION FRACTURE
     Dosage: UNK
     Route: 065
     Dates: start: 20181102
  10. SOLDEM 1 [Concomitant]
     Active Substance: DEXTROSE\SODIUM CHLORIDE\SODIUM LACTATE
     Indication: ENCEPHALITIS
  11. METHYLMETHIONINE SULFONIUM CHLORIDE [Concomitant]
     Active Substance: METHYLMETHIONINE SULFONIUM CHLORIDE
     Indication: GASTRITIS
     Dosage: UNK
     Route: 065
     Dates: start: 20180223
  12. ESOMEPRAZOLE MAGNESIUM. [Concomitant]
     Active Substance: ESOMEPRAZOLE MAGNESIUM
     Indication: HIATUS HERNIA
     Dosage: UNK
     Route: 065
     Dates: start: 20181228
  13. KIDMIN [Concomitant]
     Active Substance: AMINO ACIDS\ELECTROLYTES NOS
     Indication: ENCEPHALITIS
     Dosage: UNK
     Route: 065
     Dates: start: 20191016
  14. ASPIRIN. [Concomitant]
     Active Substance: ASPIRIN
     Indication: ENCEPHALITIS
     Dosage: UNK
     Route: 065
     Dates: start: 20191017
  15. ENSURE [Concomitant]
     Active Substance: AMINO ACIDS\DEXTROSE\ELECTROLYTES NOS\SOYBEAN OIL\VITAMINS
     Indication: DECREASED APPETITE
     Dosage: UNK
     Route: 065
     Dates: start: 20191018
  16. SENNOSIDE [Concomitant]
     Active Substance: SENNOSIDES
     Indication: CONSTIPATION
     Dosage: UNK
     Route: 065
     Dates: start: 20191017
  17. KEYTRUDA [Suspect]
     Active Substance: PEMBROLIZUMAB
     Indication: TRANSITIONAL CELL CARCINOMA
     Dosage: 200 MILLIGRAM, Q3W
     Route: 041
     Dates: start: 20190903
  18. ROSUVASTATIN CALCIUM. [Concomitant]
     Active Substance: ROSUVASTATIN CALCIUM
     Indication: ENCEPHALITIS
     Dosage: UNK
     Route: 065
     Dates: start: 20191018
  19. ESOMEPRAZOLE MAGNESIUM. [Concomitant]
     Active Substance: ESOMEPRAZOLE MAGNESIUM
     Indication: GASTROOESOPHAGEAL REFLUX DISEASE
  20. SOLDEM 1 [Concomitant]
     Active Substance: DEXTROSE\SODIUM CHLORIDE\SODIUM LACTATE
     Indication: DECREASED APPETITE
     Dosage: UNK
     Route: 065
     Dates: start: 20191008

REACTIONS (3)
  - Pancreatitis [Unknown]
  - Pneumonitis [Recovered/Resolved]
  - Cerebral infarction [Unknown]

NARRATIVE: CASE EVENT DATE: 20191021
